FAERS Safety Report 7884271-5 (Version None)
Quarter: 2011Q4

REPORT INFORMATION
  Report Type: 
  Country: None (occurrence: None)
  Receive Date: 20111102
  Receipt Date: 20111027
  Transmission Date: 20120403
  Serious: No
  Sender: FDA-Public Use
  Company Number: US-PFIZER INC-2011251155

PATIENT
  Sex: Male
  Weight: 99.773 kg

DRUGS (5)
  1. HYDROCODONE [Concomitant]
     Indication: ARTHRALGIA
     Dosage: UNK
  2. IBUPROFEN (ADVIL) [Suspect]
     Dosage: 200 MG, UNK
     Route: 048
     Dates: start: 20111001
  3. TYLENOL-500 [Concomitant]
     Indication: ARTHRALGIA
     Dosage: UNK
  4. IBUPROFEN (ADVIL) [Suspect]
     Indication: ARTHRALGIA
     Dosage: UNK
     Route: 048
  5. NORCO [Concomitant]
     Indication: ARTHRALGIA
     Dosage: UNK

REACTIONS (2)
  - DRUG INEFFECTIVE [None]
  - SOMNOLENCE [None]
